FAERS Safety Report 4907145-8 (Version None)
Quarter: 2006Q1

REPORT INFORMATION
  Report Type: 
  Country: None (occurrence: None)
  Receive Date: 20060206
  Receipt Date: 20051214
  Transmission Date: 20060701
  Serious: Yes (Hospitalization)
  Sender: FDA-Public Use
  Company Number: DEPFP-E-20050006-V001

PATIENT
  Age: 63 Year
  Sex: Male

DRUGS (5)
  1. NAVELBINE [Suspect]
     Indication: NON-SMALL CELL LUNG CANCER
     Route: 042
  2. PROTON PUMP INHIBITOR (NOS) [Concomitant]
  3. NOVICOL [Concomitant]
  4. INSULIN [Concomitant]
  5. MCP [Concomitant]

REACTIONS (3)
  - ENTEROCOLITIS [None]
  - FAECALOMA [None]
  - LEUKOPENIA [None]
